FAERS Safety Report 20009333 (Version 1)
Quarter: 2021Q4

REPORT INFORMATION
  Report Type: Spontaneous
  Country: NL (occurrence: NL)
  Receive Date: 20211029
  Receipt Date: 20211029
  Transmission Date: 20220303
  Serious: Yes (Hospitalization, Other)
  Sender: FDA-Public Use
  Company Number: NL-TWI PHARMACEUTICAL, INC-2021SCTW000064

PATIENT

DRUGS (1)
  1. BUPROPION HYDROCHLORIDE XL [Suspect]
     Active Substance: BUPROPION HYDROCHLORIDE
     Indication: Product used for unknown indication
     Dosage: UNK
     Route: 065

REACTIONS (5)
  - Metabolic acidosis [Unknown]
  - Mental status changes [Recovering/Resolving]
  - Status epilepticus [Recovered/Resolved]
  - Ventricular tachycardia [Unknown]
  - Intentional overdose [Unknown]
